FAERS Safety Report 8836238 (Version 2)
Quarter: 2015Q2

REPORT INFORMATION
  Report Type: Report from Study
  Country: US (occurrence: US)
  Receive Date: 20121011
  Receipt Date: 20150406
  Transmission Date: 20150821
  Serious: Yes (Hospitalization)
  Sender: FDA-Public Use
  Company Number: US-ROCHE-1140562

PATIENT
  Sex: Male
  Weight: 27.6 kg

DRUGS (2)
  1. PROTROPIN [Suspect]
     Active Substance: SOMATREM
     Route: 058
     Dates: end: 19901231
  2. PROTROPIN [Suspect]
     Active Substance: SOMATREM
     Indication: CHRONIC KIDNEY DISEASE
     Route: 058
     Dates: start: 19881010, end: 19900720

REACTIONS (1)
  - Malaise [Unknown]
